FAERS Safety Report 4723301-6 (Version None)
Quarter: 2005Q3

REPORT INFORMATION
  Report Type: 
  Country: None (occurrence: None)
  Receive Date: 20050725
  Receipt Date: 20041202
  Transmission Date: 20060218
  Serious: No
  Sender: FDA-Public Use
  Company Number: US-BRISTOL-MYERS SQUIBB COMPANY-12782736

PATIENT
  Age: 43 Year
  Sex: Male
  Weight: 111 kg

DRUGS (8)
  1. DOVONEX [Suspect]
     Indication: PSORIASIS
     Route: 061
     Dates: start: 20041124, end: 20041129
  2. ZOCOR [Concomitant]
  3. TRICOR [Concomitant]
  4. GLUCOPHAGE XR [Concomitant]
  5. NEXIUM [Concomitant]
  6. LEVAQUIN [Concomitant]
  7. OXYCONTIN [Concomitant]
  8. MULTI-VITAMINS [Concomitant]

REACTIONS (2)
  - BLISTER [None]
  - BURNING SENSATION [None]
